FAERS Safety Report 6333065-0 (Version None)
Quarter: 2009Q3

REPORT INFORMATION
  Report Type: 
  Country: None (occurrence: None)
  Receive Date: 20090828
  Receipt Date: 20090818
  Transmission Date: 20100115
  Serious: Yes (Death)
  Sender: FDA-Public Use
  Company Number: FR-EISAI INC.-E7273-00091-SPO-FR

PATIENT
  Age: 59 Year
  Sex: Female

DRUGS (1)
  1. TARGRETIN [Suspect]

REACTIONS (4)
  - HYPERCHOLESTEROLAEMIA [None]
  - HYPERTRIGLYCERIDAEMIA [None]
  - HYPOTHYROIDISM [None]
  - LYMPHOMA [None]
